FAERS Safety Report 17623315 (Version 3)
Quarter: 2020Q2

REPORT INFORMATION
  Report Type: Report from Study
  Country: IT (occurrence: IT)
  Receive Date: 20200403
  Receipt Date: 20200430
  Transmission Date: 20200713
  Serious: Yes (Other)
  Sender: FDA-Public Use
  Company Number: IT-INCYTE CORPORATION-2020IN003095

PATIENT

DRUGS (3)
  1. LOSAZID [Concomitant]
     Active Substance: HYDROCHLOROTHIAZIDE\LOSARTAN POTASSIUM
     Indication: HYPERTENSION
     Dosage: 50 MG, 12.5 MG
     Route: 065
     Dates: start: 2013, end: 20200322
  2. LOSARTAN. [Concomitant]
     Active Substance: LOSARTAN
     Indication: PRODUCT USED FOR UNKNOWN INDICATION
     Route: 065
  3. JAKAVI [Suspect]
     Active Substance: RUXOLITINIB
     Indication: PRIMARY MYELOFIBROSIS
     Dosage: 15 MG, BID
     Route: 048
     Dates: start: 20180426

REACTIONS (19)
  - Pleural thickening [Unknown]
  - Monocytopenia [Unknown]
  - Cough [Not Recovered/Not Resolved]
  - Lymphopenia [Unknown]
  - Pyrexia [Recovering/Resolving]
  - Anaemia [Unknown]
  - International normalised ratio increased [Unknown]
  - Pneumonia [Recovered/Resolved]
  - Inflammation [Unknown]
  - Breath sounds abnormal [Unknown]
  - Coronavirus infection [Recovered/Resolved]
  - Asthenia [Recovering/Resolving]
  - Pneumonitis [Unknown]
  - Dyspnoea [Unknown]
  - Blood pressure decreased [Unknown]
  - Fatigue [Unknown]
  - Respiratory alkalosis [Unknown]
  - Hypoxia [Unknown]
  - Severe acute respiratory syndrome [Recovered/Resolved]

NARRATIVE: CASE EVENT DATE: 20200315
